FAERS Safety Report 8522203-7 (Version None)
Quarter: 2012Q3

REPORT INFORMATION
  Report Type: 
  Country: None (occurrence: None)
  Receive Date: 20120719
  Receipt Date: 20120710
  Transmission Date: 20120928
  Serious: Yes (Hospitalization, Other)
  Sender: FDA-Public Use
  Company Number: US-ABBOTT-12P-163-0932404-00

PATIENT
  Age: 40 Year
  Sex: Female

DRUGS (21)
  1. FENTANYL [Concomitant]
     Indication: PRODUCT USED FOR UNKNOWN INDICATION
     Dosage: PATCH
     Route: 062
  2. ZOFRAN [Concomitant]
     Indication: PRODUCT USED FOR UNKNOWN INDICATION
     Dosage: 1-3 TIMES A DAY
  3. TRAZODONE HYDROCHLORIDE [Concomitant]
     Indication: PRODUCT USED FOR UNKNOWN INDICATION
     Dosage: 300MG AT BEDTIME
  4. MAXALT [Concomitant]
     Indication: MIGRAINE
     Dosage: 10 MG UP TO 3 TIMES A DAY, AS NEEDED
  5. BENTYL [Concomitant]
     Indication: PRODUCT USED FOR UNKNOWN INDICATION
     Dosage: 10MG 2 PILLS 4 TIMES A DAY AS NEEDED
  6. PROBIOTIC [Concomitant]
     Indication: PRODUCT USED FOR UNKNOWN INDICATION
     Dosage: 200 MG WITH A MEAL
  7. ATIVAN [Concomitant]
     Indication: NAUSEA
  8. NEXIUM [Concomitant]
     Indication: PRODUCT USED FOR UNKNOWN INDICATION
     Dosage: 40 MG DAILY
  9. ENABLEX [Concomitant]
     Indication: PRODUCT USED FOR UNKNOWN INDICATION
     Dosage: 7.5MG DAILY
  10. FLECTOR [Concomitant]
     Indication: PRODUCT USED FOR UNKNOWN INDICATION
     Dosage: PATCH 1.3% WILL QUIT WHEN SCRIPT RUNS OUT
  11. ATIVAN [Concomitant]
     Indication: CROHN'S DISEASE
  12. HYDROCORTISONE [Concomitant]
     Indication: PRODUCT USED FOR UNKNOWN INDICATION
     Dosage: 0.2% TWO TIMES DAILY AS NEEDED
  13. BIOTIN [Concomitant]
     Indication: PRODUCT USED FOR UNKNOWN INDICATION
     Dates: start: 20120701
  14. SYNTHROID [Suspect]
     Indication: RADIOACTIVE IODINE THERAPY
     Dates: end: 20120701
  15. FENTANYL [Concomitant]
     Dosage: PATCH
     Route: 062
  16. DILAUDID [Concomitant]
     Indication: PAIN
  17. ATIVAN [Concomitant]
     Indication: VOMITING
  18. WOMANS MULTIVITAMIN [Concomitant]
     Indication: PRODUCT USED FOR UNKNOWN INDICATION
     Dates: start: 20120701
  19. HUMIRA [Suspect]
     Indication: CROHN'S DISEASE
     Dates: start: 20120229, end: 20120426
  20. SYNTHROID [Suspect]
     Dates: start: 20120701
  21. ATIVAN [Concomitant]
     Indication: ANXIOLYTIC THERAPY
     Dosage: 2MG THREE TIMES DAILY, AS NEEDED

REACTIONS (12)
  - CONTUSION [None]
  - GAIT DISTURBANCE [None]
  - CONSTIPATION [None]
  - PAIN IN EXTREMITY [None]
  - HYPOTHYROIDISM [None]
  - EXFOLIATIVE RASH [None]
  - NEURALGIA [None]
  - MALAISE [None]
  - PAIN [None]
  - CHILLS [None]
  - INTERVERTEBRAL DISC PROTRUSION [None]
  - FEELING COLD [None]
